FAERS Safety Report 4993206-4 (Version None)
Quarter: 2006Q1

REPORT INFORMATION
  Report Type: 
  Country: None (occurrence: None)
  Receive Date: 20060313
  Receipt Date: 20060111
  Transmission Date: 20060701
  Serious: No
  Sender: FDA-Public Use
  Company Number: 2005-BP-20799BP

PATIENT
  Age: 81 Year
  Sex: Female

DRUGS (8)
  1. SPIRIVA [Suspect]
     Indication: CHRONIC OBSTRUCTIVE PULMONARY DISEASE
     Dosage: 18 MCG (18 MCG), IH
     Route: 055
     Dates: start: 20041101
  2. SPIRIVA [Suspect]
     Indication: DYSPNOEA
     Dosage: 18 MCG (18 MCG), IH
     Route: 055
     Dates: start: 20041101
  3. LANOXIN [Concomitant]
  4. TOPROL-XL [Concomitant]
  5. COUMADIN [Concomitant]
  6. LISINOPRIL [Concomitant]
  7. METHIM [Concomitant]
  8. FORTEO [Concomitant]

REACTIONS (2)
  - DRUG INEFFECTIVE [None]
  - DYSPNOEA [None]
